FAERS Safety Report 5302643-X (Version None)
Quarter: 2007Q1

REPORT INFORMATION
  Report Type: 
  Country: None (occurrence: None)
  Receive Date: 20070201
  Receipt Date: 20061215
  Transmission Date: 20070707
  Serious: No
  Sender: FDA-Public Use
  Company Number: 2006PV027068

PATIENT
  Age: 49 Year
  Sex: Female
  Weight: 98.8842 kg

DRUGS (4)
  1. BYETTA [Suspect]
     Indication: DIABETES MELLITUS NON-INSULIN-DEPENDENT
     Dosage: 5 MCG;BID;SC
     Route: 058
     Dates: start: 20061121
  2. MUCINEX DM [Suspect]
     Indication: NASOPHARYNGITIS
  3. AIRBORNE [Suspect]
     Indication: NASOPHARYNGITIS
  4. ZYRTEC [Concomitant]

REACTIONS (5)
  - INJECTION SITE ERYTHEMA [None]
  - INJECTION SITE IRRITATION [None]
  - INJECTION SITE SWELLING [None]
  - NASOPHARYNGITIS [None]
  - NAUSEA [None]
